FAERS Safety Report 24403688 (Version 1)
Quarter: 2024Q4

REPORT INFORMATION
  Report Type: Spontaneous
  Country: AU (occurrence: AU)
  Receive Date: 20241007
  Receipt Date: 20241007
  Transmission Date: 20250115
  Serious: No
  Sender: ROCHE
  Company Number: AU-ROCHE-3322892

PATIENT
  Age: 47 Year
  Sex: Male

DRUGS (4)
  1. OBINUTUZUMAB [Suspect]
     Active Substance: OBINUTUZUMAB
     Indication: Follicular lymphoma
     Dosage: FIRST RATE 50MG/HR, C1D1, NUMBER OF DOSES 1
     Route: 042
     Dates: start: 20230209
  2. BENDAMUSTINE HYDROCHLORIDE [Suspect]
     Active Substance: BENDAMUSTINE HYDROCHLORIDE
     Indication: Follicular lymphoma
     Route: 042
     Dates: start: 20230209
  3. ALLOPURINOL [Suspect]
     Active Substance: ALLOPURINOL
     Indication: Neoplasm prophylaxis
     Route: 048
     Dates: start: 20230209
  4. HYDROCORTISONE [Concomitant]
     Active Substance: HYDROCORTISONE

REACTIONS (5)
  - Blood pressure decreased [Unknown]
  - Chest discomfort [Unknown]
  - Cold sweat [Unknown]
  - Dyspnoea [Unknown]
  - Hyperhidrosis [Unknown]

NARRATIVE: CASE EVENT DATE: 20230209
